FAERS Safety Report 19379059 (Version 11)
Quarter: 2022Q1

REPORT INFORMATION
  Report Type: Report from Study
  Country: CH (occurrence: CH)
  Receive Date: 20210607
  Receipt Date: 20220321
  Transmission Date: 20220424
  Serious: Yes (Hospitalization, Other)
  Sender: FDA-Public Use
  Company Number: CH-ABBVIE-21K-151-3810816-00

PATIENT
  Age: 77 Year
  Sex: Male
  Weight: 100 kg

DRUGS (20)
  1. VENETOCLAX [Suspect]
     Active Substance: VENETOCLAX
     Indication: Chronic lymphocytic leukaemia
     Route: 048
     Dates: start: 20210112, end: 20210118
  2. VENETOCLAX [Suspect]
     Active Substance: VENETOCLAX
     Route: 048
     Dates: start: 20210119, end: 20210125
  3. VENETOCLAX [Suspect]
     Active Substance: VENETOCLAX
     Route: 048
     Dates: start: 20210126, end: 20210201
  4. VENETOCLAX [Suspect]
     Active Substance: VENETOCLAX
     Route: 048
     Dates: start: 20210202, end: 20210207
  5. VENETOCLAX [Suspect]
     Active Substance: VENETOCLAX
     Route: 048
     Dates: start: 20210208, end: 20210214
  6. VENETOCLAX [Suspect]
     Active Substance: VENETOCLAX
     Route: 048
     Dates: start: 20210215, end: 20210505
  7. VENETOCLAX [Suspect]
     Active Substance: VENETOCLAX
     Route: 048
     Dates: start: 20210506, end: 20210817
  8. VENETOCLAX [Suspect]
     Active Substance: VENETOCLAX
     Route: 048
     Dates: start: 20210818, end: 20211110
  9. VENETOCLAX [Suspect]
     Active Substance: VENETOCLAX
     Route: 048
     Dates: end: 20220222
  10. XARELTO [Concomitant]
     Active Substance: RIVAROXABAN
     Indication: Atrial fibrillation
     Route: 048
     Dates: start: 20200123
  11. XARELTO [Concomitant]
     Active Substance: RIVAROXABAN
     Route: 048
     Dates: start: 20170724, end: 20200122
  12. HYDROCHLOROTHIAZIDE\IRBESARTAN [Concomitant]
     Active Substance: HYDROCHLOROTHIAZIDE\IRBESARTAN
     Indication: Hypertension
     Dosage: 300/25MG/DAILY
     Route: 048
     Dates: start: 20170727, end: 20210214
  13. ALDARA [Concomitant]
     Active Substance: IMIQUIMOD
     Indication: Product used for unknown indication
     Dosage: DAILY
     Route: 062
     Dates: start: 20190414, end: 20190415
  14. ALLOPURINOL [Concomitant]
     Active Substance: ALLOPURINOL
     Indication: Prophylaxis
     Route: 048
     Dates: start: 20210111, end: 20210215
  15. BACTRIM [Concomitant]
     Active Substance: SULFAMETHOXAZOLE\TRIMETHOPRIM
     Indication: Infection prophylaxis
     Dosage: 800 / 160MG
     Route: 048
     Dates: start: 20210111
  16. BACTRIM [Concomitant]
     Active Substance: SULFAMETHOXAZOLE\TRIMETHOPRIM
     Dosage: 800 / 160MG
     Route: 048
  17. VALTREX [Concomitant]
     Active Substance: VALACYCLOVIR HYDROCHLORIDE
     Indication: Infection prophylaxis
     Route: 048
     Dates: start: 20210111
  18. VALTREX [Concomitant]
     Active Substance: VALACYCLOVIR HYDROCHLORIDE
     Route: 048
  19. BILASTINE [Concomitant]
     Active Substance: BILASTINE
     Indication: Prophylaxis
     Dosage: BEFORE RITUXIMAB
     Route: 048
     Dates: start: 20210111
  20. DAFALGAN [Concomitant]
     Active Substance: ACETAMINOPHEN
     Indication: Prophylaxis
     Dosage: BEFORE RITUXIMAB
     Route: 048
     Dates: start: 20210111

REACTIONS (15)
  - Craniocerebral injury [Recovering/Resolving]
  - Infection [Recovered/Resolved]
  - Lung disorder [Recovered/Resolved]
  - Hypophosphataemia [Not Recovered/Not Resolved]
  - Anaemia [Not Recovered/Not Resolved]
  - Cough [Recovered/Resolved]
  - Cough [Recovered/Resolved]
  - Chills [Recovering/Resolving]
  - Hypomagnesaemia [Recovered/Resolved]
  - Hyperbilirubinaemia [Recovered/Resolved]
  - Thrombocytopenia [Not Recovered/Not Resolved]
  - Lymphopenia [Not Recovered/Not Resolved]
  - Neutropenia [Recovered/Resolved]
  - Fatigue [Not Recovered/Not Resolved]
  - Fatigue [Recovered/Resolved]

NARRATIVE: CASE EVENT DATE: 20210112
